FAERS Safety Report 12528000 (Version 1)
Quarter: 2016Q3

REPORT INFORMATION
  Report Type: Report from Study
  Country: PL (occurrence: PL)
  Receive Date: 20160705
  Receipt Date: 20160705
  Transmission Date: 20161109
  Serious: Yes (Death)
  Sender: FDA-Public Use
  Company Number: PL-TEVA-672744ISR

PATIENT
  Age: 65 Year
  Sex: Male
  Weight: 62 kg

DRUGS (12)
  1. BUSCOLIZYN [Concomitant]
     Dates: start: 20151119, end: 20151119
  2. CARBOPLATIN. [Suspect]
     Active Substance: CARBOPLATIN
     Indication: NON-SMALL CELL LUNG CANCER
     Dosage: 881.13 MG, EVERY 3 WEEKS
     Route: 042
     Dates: start: 20151119, end: 20151119
  3. PACLITAXEL. [Suspect]
     Active Substance: PACLITAXEL
     Indication: NON-SMALL CELL LUNG CANCER
     Dosage: 348 MG, EVERY 3 WEEKS
     Route: 042
     Dates: start: 20151119, end: 20151119
  4. ZOFRAN [Concomitant]
     Active Substance: ONDANSETRON HYDROCHLORIDE
     Dates: start: 20151119, end: 20151119
  5. NATRIUM CHLORATUM 0.9% [Concomitant]
     Dates: start: 20151119, end: 20151119
  6. KETONAL [Concomitant]
     Active Substance: KETOPROFEN
     Dates: start: 20151119, end: 20151119
  7. DEXAMETHASONE. [Concomitant]
     Active Substance: DEXAMETHASONE
     Dates: start: 20151119, end: 20151119
  8. CLEMASTIN [Concomitant]
     Active Substance: CLEMASTINE
     Dates: start: 20151119, end: 20151119
  9. PF-06439535 [Suspect]
     Active Substance: INVESTIGATIONAL PRODUCT
     Indication: NON-SMALL CELL LUNG CANCER
     Dosage: 930 MG, EVERY 3 WEEKS
     Route: 042
     Dates: start: 20151119, end: 20151119
  10. RANIGAST [Concomitant]
     Dates: start: 20151119, end: 20151119
  11. IPP /00661201/ (OMEPRAZOLE) [Concomitant]
     Dates: start: 20151119, end: 20151119
  12. AVASTIN [Suspect]
     Active Substance: BEVACIZUMAB

REACTIONS (1)
  - Death [Fatal]

NARRATIVE: CASE EVENT DATE: 20151123
